FAERS Safety Report 22641169 (Version 7)
Quarter: 2023Q4

REPORT INFORMATION
  Report Type: Spontaneous
  Country: US (occurrence: US)
  Receive Date: 20230626
  Receipt Date: 20231106
  Transmission Date: 20240110
  Serious: No
  Sender: FDA-Public Use
  Company Number: US-PFIZER INC-PV202300108860

PATIENT
  Age: 73 Year
  Sex: Female

DRUGS (1)
  1. IBRANCE [Suspect]
     Active Substance: PALBOCICLIB
     Dosage: 125 MG

REACTIONS (7)
  - Nausea [Unknown]
  - Abdominal discomfort [Unknown]
  - Tongue discomfort [Unknown]
  - Oral discomfort [Unknown]
  - Fatigue [Unknown]
  - Oral pain [Unknown]
  - Ear inflammation [Unknown]
